FAERS Safety Report 17716783 (Version 1)
Quarter: 2020Q2

REPORT INFORMATION
  Report Type: Spontaneous
  Country: US (occurrence: US)
  Receive Date: 20200428
  Receipt Date: 20200428
  Transmission Date: 20200714
  Serious: No
  Sender: FDA-Public Use
  Company Number: US-RECORDATI RARE DISEASES-2083263

PATIENT
  Age: 17 Year
  Sex: Female
  Weight: 66 kg

DRUGS (10)
  1. PROPIMEX-2 [Concomitant]
  2. CYSTADANE [Suspect]
     Active Substance: BETAINE
  3. CARNITOR [Concomitant]
     Active Substance: LEVOCARNITINE
  4. FOLIC ACID. [Concomitant]
     Active Substance: FOLIC ACID
  5. NAYZILAM [Concomitant]
     Active Substance: MIDAZOLAM
  6. HYDROXOCOBALAMIN [Concomitant]
     Active Substance: HYDROXOCOBALAMIN
  7. VITAMIN D3 [Concomitant]
     Active Substance: CHOLECALCIFEROL
  8. CLONIDINE. [Concomitant]
     Active Substance: CLONIDINE
  9. LAMOTRIGINE. [Concomitant]
     Active Substance: LAMOTRIGINE
  10. CYSTADANE [Suspect]
     Active Substance: BETAINE
     Indication: ACIDOSIS
     Dates: start: 2003

REACTIONS (5)
  - Epistaxis [Recovered/Resolved]
  - Inappropriate schedule of product administration [Not Recovered/Not Resolved]
  - Skin odour abnormal [Unknown]
  - Product dose omission [Unknown]
  - Product odour abnormal [Unknown]

NARRATIVE: CASE EVENT DATE: 20200124
